FAERS Safety Report 5293783-2 (Version None)
Quarter: 2007Q2

REPORT INFORMATION
  Report Type: 
  Country: None (occurrence: None)
  Receive Date: 20070411
  Receipt Date: 20070330
  Transmission Date: 20071010
  Serious: Yes (Other)
  Sender: FDA-Public Use
  Company Number: US-PFIZER INC-2007026222

PATIENT
  Sex: Female
  Weight: 66.2 kg

DRUGS (7)
  1. LYRICA [Suspect]
     Indication: NEUROPATHY PERIPHERAL
     Dates: start: 20070323, end: 20070326
  2. SYNTHROID [Concomitant]
  3. DIGOXIN [Concomitant]
  4. VALSARTAN [Concomitant]
  5. LOPRESSOR [Concomitant]
  6. CELEBREX [Concomitant]
  7. WARFARIN SODIUM [Concomitant]

REACTIONS (2)
  - MOVEMENT DISORDER [None]
  - PARALYSIS [None]
